FAERS Safety Report 15124190 (Version 2)
Quarter: 2019Q2

REPORT INFORMATION
  Report Type: Report from Study
  Country: None (occurrence: BR)
  Receive Date: 20180710
  Receipt Date: 20190603
  Transmission Date: 20190711
  Serious: Yes (Other)
  Sender: FDA-Public Use
  Company Number: BR-ABBVIE-18K-020-2410716-00

PATIENT
  Age: 63 Year
  Sex: Female
  Weight: 110 kg

DRUGS (5)
  1. RIVOTRIL [Concomitant]
     Active Substance: CLONAZEPAM
     Indication: PANIC DISORDER
  2. OMEPRAZOLE. [Concomitant]
     Active Substance: OMEPRAZOLE
     Indication: PROPHYLAXIS
  3. HUMIRA [Suspect]
     Active Substance: ADALIMUMAB
     Route: 058
     Dates: start: 20180717, end: 2018
  4. HUMIRA [Suspect]
     Active Substance: ADALIMUMAB
     Indication: PSORIATIC ARTHROPATHY
     Route: 058
     Dates: start: 2015
  5. SIMVASTATIN. [Concomitant]
     Active Substance: SIMVASTATIN
     Indication: BLOOD CHOLESTEROL INCREASED

REACTIONS (15)
  - Discomfort [Recovering/Resolving]
  - Skin exfoliation [Recovering/Resolving]
  - Arthritis [Recovering/Resolving]
  - Limb injury [Recovering/Resolving]
  - Viral infection [Unknown]
  - Influenza [Recovering/Resolving]
  - Joint injury [Recovering/Resolving]
  - Immunodeficiency [Unknown]
  - Musculoskeletal deformity [Not Recovered/Not Resolved]
  - Asthenia [Unknown]
  - Tooth disorder [Unknown]
  - Nasopharyngitis [Unknown]
  - Dry skin [Recovering/Resolving]
  - Product prescribing error [Unknown]
  - Listless [Recovering/Resolving]

NARRATIVE: CASE EVENT DATE: 2016
